FAERS Safety Report 5650534-7 (Version None)
Quarter: 2008Q1

REPORT INFORMATION
  Report Type: 
  Country: None (occurrence: None)
  Receive Date: 20080304
  Receipt Date: 20080304
  Transmission Date: 20080703
  Serious: Yes (Life-Threatening)
  Sender: FDA-Public Use
  Company Number: None

PATIENT
  Age: 56 Year
  Sex: Female
  Weight: 54.4316 kg

DRUGS (2)
  1. PROAIR HFA [Suspect]
     Indication: ASTHMA
     Dosage: TWO PUFFS TWICE A DAY PO
     Route: 048
     Dates: start: 20080221, end: 20080222
  2. PROAIR HFA [Suspect]
     Indication: BRONCHITIS
     Dosage: TWO PUFFS TWICE A DAY PO
     Route: 048
     Dates: start: 20080221, end: 20080222

REACTIONS (2)
  - DRUG HYPERSENSITIVITY [None]
  - DRUG INEFFECTIVE [None]
